FAERS Safety Report 15531234 (Version 1)
Quarter: 2018Q4

REPORT INFORMATION
  Report Type: Spontaneous
  Country: DK (occurrence: DK)
  Receive Date: 20181019
  Receipt Date: 20181019
  Transmission Date: 20190205
  Serious: Yes (Hospitalization, Disabling)
  Sender: FDA-Public Use
  Company Number: DK-TEVA-2018-DK-965894

PATIENT
  Age: 74 Year
  Sex: Female

DRUGS (13)
  1. ALENDRONATE SODIUM TRIHYDRATE [Suspect]
     Active Substance: ALENDRONATE SODIUM
     Indication: OSTEOPOROSIS
     Route: 048
     Dates: start: 20140422
  2. KALEORID [Concomitant]
     Active Substance: POTASSIUM CHLORIDE
     Indication: HYPOKALAEMIA
     Dosage: 1500 MILLIGRAM DAILY;
     Route: 048
     Dates: start: 2014
  3. ATORVASTATIN ^HEXAL^ [Concomitant]
     Indication: HYPERCHOLESTEROLAEMIA
     Dosage: 40 MILLIGRAM DAILY;
     Route: 048
     Dates: start: 2014
  4. INNOVAIR [Concomitant]
     Active Substance: BECLOMETHASONE DIPROPIONATE\FORMOTEROL
     Indication: CHRONIC OBSTRUCTIVE PULMONARY DISEASE
     Dosage: 4 DOSAGE FORMS DAILY; STRENGTH: 100 + 6 MICROGRAM/DOSE
     Route: 055
     Dates: start: 20141203
  5. PANTOPRAZOL ^TAKEDA^ [Concomitant]
     Indication: PROPHYLAXIS AGAINST GASTROINTESTINAL ULCER
     Dosage: 20 MILLIGRAM DAILY;
     Route: 048
     Dates: start: 20180824
  6. ANCOZAN [Concomitant]
     Active Substance: LOSARTAN POTASSIUM
     Indication: HYPERTENSION
     Dosage: 50 MILLIGRAM DAILY;
     Route: 048
     Dates: start: 20180821
  7. DONEPEZIL ^STADA^ [Concomitant]
     Indication: PARKINSON^S DISEASE
     Dosage: 10 MILLIGRAM DAILY;
     Route: 048
     Dates: start: 201604
  8. PARACETAMOL ^ORIFARM^ [Concomitant]
     Indication: PAIN
     Dosage: 3000 MILLIGRAM DAILY;
     Route: 048
     Dates: start: 20180824
  9. SEEBRI BREEZHALER [Concomitant]
     Active Substance: GLYCOPYRROLATE
     Indication: CHRONIC OBSTRUCTIVE PULMONARY DISEASE
     Dosage: 44 MICROGRAM DAILY;
     Route: 055
     Dates: start: 20150807
  10. VENTOLINE [Concomitant]
     Active Substance: ALBUTEROL
     Indication: BRONCHOSPASM
     Dosage: DOSE: DOSING ACCORDING TO WRITTEN INSTRUCTIONS. STRENGTH: 0.1 MG/DOSE
     Route: 055
     Dates: start: 2014
  11. UNIKALK BASIC [Concomitant]
     Indication: OSTEOPOROSIS
     Dosage: DOSE: 1 TABLET MORNING AND EVENING. STRENGTH: UNKNOWN.
     Route: 048
     Dates: start: 20171006
  12. PREGABALIN ^SANDOZ^ [Concomitant]
     Indication: ANXIETY
     Dosage: 50 MILLIGRAM DAILY;
     Route: 048
     Dates: start: 2016
  13. ESCITALOPRAM ^TEVA^ [Concomitant]
     Active Substance: ESCITALOPRAM OXALATE
     Indication: ANXIETY
     Dosage: 10 MILLIGRAM DAILY;
     Route: 048
     Dates: start: 20171006

REACTIONS (4)
  - Abscess jaw [Unknown]
  - Fistula [Not Recovered/Not Resolved]
  - Osteonecrosis of jaw [Not Recovered/Not Resolved]
  - Sequestrectomy [Unknown]

NARRATIVE: CASE EVENT DATE: 201806
